FAERS Safety Report 15335488 (Version 1)
Quarter: 2018Q3

REPORT INFORMATION
  Report Type: Spontaneous
  Country: US (occurrence: US)
  Receive Date: 20180830
  Receipt Date: 20180830
  Transmission Date: 20181010
  Serious: Yes (Other)
  Sender: FDA-Public Use
  Company Number: US-CELGENEUS-USA-20180807547

PATIENT
  Sex: Female
  Weight: 72.19 kg

DRUGS (1)
  1. REVLIMID [Suspect]
     Active Substance: LENALIDOMIDE
     Indication: MYELODYSPLASTIC SYNDROME
     Dosage: 6.6667 MILLIGRAM
     Route: 048
     Dates: start: 20180806

REACTIONS (1)
  - Full blood count decreased [Not Recovered/Not Resolved]
